FAERS Safety Report 24604910 (Version 6)
Quarter: 2025Q1

REPORT INFORMATION
  Report Type: Spontaneous
  Country: US (occurrence: US)
  Receive Date: 20241111
  Receipt Date: 20250107
  Transmission Date: 20250409
  Serious: No
  Sender: PFIZER
  Company Number: US-PFIZER INC-202400293782

PATIENT
  Age: 15 Year
  Sex: Male
  Weight: 54.9 kg

DRUGS (2)
  1. GENOTROPIN [Suspect]
     Active Substance: SOMATROPIN
     Indication: Growth hormone deficiency
     Dosage: 1.2 MG, DAILY FOR 2 WEEKS
     Route: 058
     Dates: start: 20240904
  2. GENOTROPIN [Suspect]
     Active Substance: SOMATROPIN
     Dosage: 2.4 MG, DAILY
     Route: 058

REACTIONS (4)
  - Breast tenderness [Recovered/Resolved]
  - Injection site pain [Recovered/Resolved]
  - Patient-device incompatibility [Unknown]
  - Device leakage [Unknown]
